FAERS Safety Report 8856088 (Version 1)
Quarter: 2012Q4

REPORT INFORMATION
  Report Type: 
  Country: US (occurrence: US)
  Receive Date: 20121023
  Receipt Date: 20121023
  Transmission Date: 20130627
  Serious: No
  Sender: FDA-Public Use
  Company Number: US-AMGEN-USASP2012058128

PATIENT
  Age: 56 Year
  Sex: Male
  Weight: 129.25 kg

DRUGS (10)
  1. ENBREL [Suspect]
     Indication: RHEUMATOID ARTHRITIS
     Dosage: 50 mg, qwk
     Route: 058
     Dates: start: 2007
  2. ADVAIR [Concomitant]
     Dosage: UNK
  3. ADVIL                              /00044201/ [Concomitant]
     Dosage: UNK
  4. FLONASE [Concomitant]
     Dosage: UNK
  5. HYDROCHLOROTHIAZIDE [Concomitant]
     Dosage: UNK
  6. PLAQUENIL                          /00072602/ [Concomitant]
     Dosage: UNK
  7. PROVENTIL                          /00139501/ [Concomitant]
     Dosage: UNK
  8. THEOPHYLLINE [Concomitant]
     Dosage: UNK
  9. URSODIOL [Concomitant]
     Dosage: UNK
  10. SINUSTAB [Concomitant]
     Dosage: UNK

REACTIONS (1)
  - Skin ulcer [Recovered/Resolved]
